FAERS Safety Report 9791575 (Version 1)
Quarter: 2014Q1

REPORT INFORMATION
  Report Type: Spontaneous
  Country: US (occurrence: US)
  Receive Date: 20140101
  Receipt Date: 20140101
  Transmission Date: 20141002
  Serious: Yes (Disabling)
  Sender: FDA-Public Use
  Company Number: US-GE HEALTHCARE MEDICAL DIAGNOSTICS-OSCN-PR-1312S-0149

PATIENT
  Age: 54 Year
  Sex: Male

DRUGS (25)
  1. OMNISCAN [Suspect]
     Indication: BONE SCAN ABNORMAL
     Dates: start: 20001129, end: 20001129
  2. OMNISCAN [Suspect]
     Indication: PAIN
     Route: 042
     Dates: start: 20001212, end: 20001212
  3. OMNISCAN [Suspect]
     Indication: ERYTHEMA
  4. OMNISCAN [Suspect]
     Indication: ARTHRALGIA
  5. OMNISCAN [Suspect]
     Indication: SEPSIS
  6. GADOLINIUM (UNSPECIFIED) [Suspect]
  7. INSULIN HUMALOG [Concomitant]
  8. ULTRALENTE INSULIN [Concomitant]
  9. REGULAR INSULIN [Concomitant]
  10. VERAPAMIL [Concomitant]
  11. MINOXIDIL [Concomitant]
  12. ATACAND [Concomitant]
  13. CYTOTEC [Concomitant]
  14. PREVACID [Concomitant]
  15. PHOSLO [Concomitant]
  16. DARVOCET [Concomitant]
  17. LORAZEPAM [Concomitant]
  18. CLONIDINE [Concomitant]
  19. EPOGEN [Concomitant]
  20. QUESTRAN [Concomitant]
  21. HEPARIN [Concomitant]
  22. GLUCAGON [Concomitant]
  23. CELLCEPT [Concomitant]
  24. PROGRAF [Concomitant]
  25. PREDNISONE [Concomitant]

REACTIONS (1)
  - Nephrogenic systemic fibrosis [Not Recovered/Not Resolved]
